FAERS Safety Report 5995576-7 (Version None)
Quarter: 2008Q4

REPORT INFORMATION
  Report Type: 
  Country: None (occurrence: None)
  Receive Date: 20081212
  Receipt Date: 20080926
  Transmission Date: 20090506
  Serious: No
  Sender: FDA-Public Use
  Company Number: US-ABBOTT-08P-163-0479299-00

PATIENT
  Sex: Male
  Weight: 95.34 kg

DRUGS (4)
  1. HUMIRA [Suspect]
     Indication: PSORIATIC ARTHROPATHY
     Route: 050
     Dates: start: 20080101, end: 20080601
  2. COLCHICINE [Concomitant]
     Indication: ARTHROPATHY
     Route: 048
  3. ALLOPURINOL [Concomitant]
     Indication: ARTHROPATHY
     Route: 048
  4. VICODIN [Concomitant]
     Indication: PAIN
     Route: 048

REACTIONS (1)
  - DRUG INEFFECTIVE [None]
